FAERS Safety Report 5008774-6 (Version None)
Quarter: 2006Q2

REPORT INFORMATION
  Report Type: 
  Country: None (occurrence: None)
  Receive Date: 20060519
  Receipt Date: 20060511
  Transmission Date: 20061013
  Serious: Yes (Hospitalization, Other)
  Sender: FDA-Public Use
  Company Number: 200610005BWH

PATIENT
  Age: 67 Year
  Sex: Male
  Weight: 47.6277 kg

DRUGS (10)
  1. SORAFENIB [Suspect]
     Indication: METASTATIC RENAL CELL CARCINOMA
     Dosage: SEE IMAGE
     Route: 048
     Dates: start: 20051215, end: 20051221
  2. SORAFENIB [Suspect]
     Indication: METASTATIC RENAL CELL CARCINOMA
     Dosage: SEE IMAGE
     Route: 048
     Dates: start: 20051221
  3. DILAUDID [Concomitant]
  4. SENOKOT [Concomitant]
  5. TEMAZEPAM [Concomitant]
  6. LEXAPRO [Concomitant]
  7. ATIVAN [Concomitant]
  8. COMPAZINE [Concomitant]
  9. SCOPOLAMINE [Concomitant]
  10. FENTANYL [Concomitant]

REACTIONS (8)
  - COMA [None]
  - CONFUSIONAL STATE [None]
  - DELIRIUM [None]
  - HAEMOTHORAX [None]
  - HYPOXIA [None]
  - LUNG NEOPLASM [None]
  - MENTAL STATUS CHANGES [None]
  - PLEURAL EFFUSION [None]
